FAERS Safety Report 6707778-2 (Version None)
Quarter: 2010Q2

REPORT INFORMATION
  Report Type: 
  Country: None (occurrence: None)
  Receive Date: 20100503
  Receipt Date: 20090909
  Transmission Date: 20101027
  Serious: No
  Sender: FDA-Public Use
  Company Number: US-ASTRAZENECA-2009UW18600

PATIENT
  Sex: Male
  Weight: 78.9 kg

DRUGS (11)
  1. NEXIUM [Suspect]
     Route: 048
  2. DEPAKOTE [Concomitant]
  3. IMITREX [Concomitant]
  4. HYDROXYZINE [Concomitant]
  5. ATARAX [Concomitant]
  6. TIZANIDINE HCL [Concomitant]
  7. LORAZEPAM [Concomitant]
  8. VITAMIN E [Concomitant]
  9. MAGNESIUM [Concomitant]
  10. MULTI-VITAMIN [Concomitant]
  11. GINKGO [Concomitant]

REACTIONS (1)
  - NO ADVERSE EVENT [None]
